FAERS Safety Report 24884120 (Version 2)
Quarter: 2025Q1

REPORT INFORMATION
  Report Type: Spontaneous
  Country: US (occurrence: US)
  Receive Date: 20250124
  Receipt Date: 20250217
  Transmission Date: 20250408
  Serious: Yes (Hospitalization, Other)
  Sender: Vantive US Healthcare
  Company Number: US-VANTIVE-2025VAN000336

PATIENT
  Sex: Male

DRUGS (6)
  1. EXTRANEAL [Suspect]
     Active Substance: CALCIUM CHLORIDE\ICODEXTRIN\MAGNESIUM CHLORIDE\SODIUM CHLORIDE\SODIUM LACTATE
     Indication: End stage renal disease
     Route: 033
     Dates: end: 202501
  2. CALCIUM [Suspect]
     Active Substance: CALCIUM
     Route: 065
  3. MAGNESIUM [Suspect]
     Active Substance: MAGNESIUM
     Route: 065
  4. DEXTROSE [Suspect]
     Active Substance: DEXTROSE MONOHYDRATE
     Route: 033
     Dates: end: 20250110
  5. DEXTROSE [Suspect]
     Active Substance: DEXTROSE MONOHYDRATE
     Route: 033
  6. DEXTROSE [Suspect]
     Active Substance: DEXTROSE MONOHYDRATE
     Route: 033

REACTIONS (4)
  - Peritonitis bacterial [Recovered/Resolved]
  - Peritoneal cloudy effluent [Recovered/Resolved]
  - Abdominal pain [Recovered/Resolved]
  - Peritoneal dialysis complication [Unknown]
